FAERS Safety Report 21269595 (Version 1)
Quarter: 2022Q3

REPORT INFORMATION
  Report Type: Spontaneous
  Country: US (occurrence: None)
  Receive Date: 20220829
  Receipt Date: 20220829
  Transmission Date: 20221027
  Serious: Yes (Hospitalization)
  Sender: FDA-Public Use
  Company Number: None

PATIENT
  Age: 63 Year
  Sex: Female
  Weight: 110 kg

DRUGS (1)
  1. FARXIGA [Suspect]
     Active Substance: DAPAGLIFLOZIN PROPANEDIOL
     Dates: start: 20220607

REACTIONS (5)
  - Flank pain [None]
  - Nausea [None]
  - Vomiting [None]
  - Culture urine positive [None]
  - Nephrolithiasis [None]

NARRATIVE: CASE EVENT DATE: 20220826
